FAERS Safety Report 5834421-7 (Version None)
Quarter: 2008Q3

REPORT INFORMATION
  Report Type: 
  Country: None (occurrence: None)
  Receive Date: 20080805
  Receipt Date: 20080728
  Transmission Date: 20090109
  Serious: Yes (Other)
  Sender: FDA-Public Use
  Company Number: US-ASTRAZENECA-2006UW02725

PATIENT
  Age: 6 Year
  Sex: Male
  Weight: 95.3 kg

DRUGS (14)
  1. SEROQUEL [Suspect]
     Indication: SLEEP DISORDER
     Dosage: 150 MG - 300 MG
     Route: 048
     Dates: start: 20010101, end: 20040427
  2. SEROQUEL [Suspect]
     Indication: PSYCHOMOTOR HYPERACTIVITY
     Dosage: 150 MG - 300 MG
     Route: 048
     Dates: start: 20010101, end: 20040427
  3. SEROQUEL [Suspect]
     Indication: INSOMNIA
     Dosage: 150 MG - 300 MG
     Route: 048
     Dates: start: 20010101, end: 20040427
  4. SEROQUEL [Suspect]
     Indication: SCHIZOPHRENIA
     Dosage: 150 MG - 300 MG
     Route: 048
     Dates: start: 20010101, end: 20040427
  5. SEROQUEL [Suspect]
     Route: 048
     Dates: start: 20040424, end: 20040617
  6. SEROQUEL [Suspect]
     Route: 048
     Dates: start: 20040424, end: 20040617
  7. SEROQUEL [Suspect]
     Route: 048
     Dates: start: 20040424, end: 20040617
  8. SEROQUEL [Suspect]
     Route: 048
     Dates: start: 20040424, end: 20040617
  9. SEROQUEL [Suspect]
     Dosage: 150MG - 600MG
     Route: 048
     Dates: start: 20010101, end: 20040617
  10. SEROQUEL [Suspect]
     Dosage: 150MG - 600MG
     Route: 048
     Dates: start: 20010101, end: 20040617
  11. SEROQUEL [Suspect]
     Dosage: 150MG - 600MG
     Route: 048
     Dates: start: 20010101, end: 20040617
  12. SEROQUEL [Suspect]
     Dosage: 150MG - 600MG
     Route: 048
     Dates: start: 20010101, end: 20040617
  13. RISPERDAL [Suspect]
     Dates: start: 20010101, end: 20030808
  14. ZYPREXA [Suspect]
     Dates: start: 20020101, end: 20040601

REACTIONS (7)
  - APPENDICECTOMY [None]
  - GASTROINTESTINAL DISORDER [None]
  - HYPERGLYCAEMIA [None]
  - HYPOGLYCAEMIA [None]
  - OBESITY [None]
  - PANCREATIC DISORDER [None]
  - PANCREATITIS [None]
